FAERS Safety Report 25286756 (Version 1)
Quarter: 2025Q2

REPORT INFORMATION
  Report Type: Report from Study
  Country: IT (occurrence: IT)
  Receive Date: 20250509
  Receipt Date: 20250509
  Transmission Date: 20250716
  Serious: Yes (Other)
  Sender: TAKEDA
  Company Number: IT-TAKEDA-2025TUS042715

PATIENT
  Sex: Male

DRUGS (3)
  1. RURIOCTOCOG ALFA PEGOL [Suspect]
     Active Substance: RURIOCTOCOG ALFA PEGOL
     Indication: Haemophilia
     Dosage: 3000 INTERNATIONAL UNIT, 2/WEEK
  2. RURIOCTOCOG ALFA PEGOL [Suspect]
     Active Substance: RURIOCTOCOG ALFA PEGOL
     Dosage: 4000 INTERNATIONAL UNIT, 2/WEEK
  3. RURIOCTOCOG ALFA PEGOL [Suspect]
     Active Substance: RURIOCTOCOG ALFA PEGOL

REACTIONS (4)
  - Haemarthrosis [Unknown]
  - Flank pain [Unknown]
  - Abdominal pain lower [Unknown]
  - Activated partial thromboplastin time abnormal [Unknown]

NARRATIVE: CASE EVENT DATE: 20250415
